FAERS Safety Report 25827128 (Version 1)
Quarter: 2025Q3

REPORT INFORMATION
  Report Type: Spontaneous
  Country: CN (occurrence: CN)
  Receive Date: 20250920
  Receipt Date: 20250920
  Transmission Date: 20251021
  Serious: Yes (Other)
  Sender: NOVARTIS
  Company Number: CN-002147023-NVSC2025CN143384

PATIENT

DRUGS (4)
  1. CYCLOSPORINE [Suspect]
     Active Substance: CYCLOSPORINE
     Indication: Immunosuppression
     Route: 065
  2. MYCOPHENOLATE MOFETIL [Suspect]
     Active Substance: MYCOPHENOLATE MOFETIL
     Indication: Immunosuppression
     Route: 065
  3. METHYLPREDNISOLONE [Suspect]
     Active Substance: METHYLPREDNISOLONE
     Indication: Immunosuppression
     Route: 065
  4. MUROMONAB-CD3 [Suspect]
     Active Substance: MUROMONAB-CD3
     Indication: Immunosuppression
     Route: 065

REACTIONS (3)
  - Transplant rejection [Unknown]
  - Nephropathy toxic [Unknown]
  - Hypertension [Unknown]
